FAERS Safety Report 16699840 (Version 2)
Quarter: 2020Q3

REPORT INFORMATION
  Report Type: Report from Study
  Country: KR (occurrence: KR)
  Receive Date: 20190813
  Receipt Date: 20190909
  Transmission Date: 20201104
  Serious: Yes (Hospitalization)
  Sender: FDA-Public Use
  Company Number: PHHO2019KR006881

PATIENT
  Age: 46 Year
  Sex: Male
  Weight: 51 kg

DRUGS (2)
  1. PDR001 [Suspect]
     Active Substance: SPARTALIZUMAB
     Indication: GASTROINTESTINAL STROMAL TUMOUR
     Dosage: 400 MG, UNK
     Route: 041
     Dates: start: 20190528, end: 20190622
  2. GLIVEC [Suspect]
     Active Substance: IMATINIB MESYLATE
     Indication: GASTROINTESTINAL STROMAL TUMOUR
     Dosage: 400 MG, UNK
     Route: 048
     Dates: start: 20170109, end: 20190622

REACTIONS (2)
  - Sepsis [Recovered/Resolved]
  - Liver abscess [Recovering/Resolving]

NARRATIVE: CASE EVENT DATE: 20190622
